FAERS Safety Report 8578383-0 (Version None)
Quarter: 2012Q3

REPORT INFORMATION
  Report Type: 
  Country: None (occurrence: None)
  Receive Date: 20120808
  Receipt Date: 20120725
  Transmission Date: 20120928
  Serious: No
  Sender: FDA-Public Use
  Company Number: US-JNJFOC-20120713272

PATIENT
  Sex: Female
  Weight: 57.15 kg

DRUGS (3)
  1. DURAGESIC-100 [Suspect]
     Indication: ARTERIOVENOUS MALFORMATION
     Route: 062
     Dates: start: 20120201
  2. NORCO [Concomitant]
     Indication: PAIN
     Dosage: 10/325
     Route: 048
  3. SOMA [Concomitant]
     Indication: PAIN
     Route: 048

REACTIONS (2)
  - WRONG TECHNIQUE IN DRUG USAGE PROCESS [None]
  - PRODUCT QUALITY ISSUE [None]
